FAERS Safety Report 15526157 (Version 4)
Quarter: 2019Q1

REPORT INFORMATION
  Report Type: Report from Study
  Country: BR (occurrence: BR)
  Receive Date: 20181018
  Receipt Date: 20190215
  Transmission Date: 20190417
  Serious: Yes (Death, Hospitalization)
  Sender: FDA-Public Use
  Company Number: BR-TAKEDA-2018MPI013309

PATIENT
  Age: 60 Year
  Sex: Female

DRUGS (1)
  1. IXAZOMIB [Suspect]
     Active Substance: IXAZOMIB
     Indication: PLASMA CELL MYELOMA
     Dosage: 4 MG, UNK
     Route: 048

REACTIONS (9)
  - Death [Fatal]
  - Infection [Unknown]
  - Anxiety [Unknown]
  - Dyspnoea [Unknown]
  - Confusional state [Unknown]
  - Asthenia [Unknown]
  - Gastrointestinal infection [Unknown]
  - Headache [Unknown]
  - Anaemia [Unknown]

NARRATIVE: CASE EVENT DATE: 20181015
